FAERS Safety Report 21280177 (Version 1)
Quarter: 2022Q3

REPORT INFORMATION
  Report Type: Spontaneous
  Country: CA (occurrence: CA)
  Receive Date: 20220901
  Receipt Date: 20220901
  Transmission Date: 20221027
  Serious: Yes (Other)
  Sender: FDA-Public Use
  Company Number: CA-SA-2022SA357474

PATIENT
  Age: 31 Year
  Sex: Female

DRUGS (1)
  1. DUPIXENT [Suspect]
     Active Substance: DUPILUMAB
     Indication: Angioedema
     Dosage: 600 MG
     Route: 058

REACTIONS (5)
  - Blood pressure diastolic decreased [Unknown]
  - Cough [Unknown]
  - Dysphonia [Unknown]
  - Pruritus [Unknown]
  - Product use in unapproved indication [Unknown]
